FAERS Safety Report 11866185 (Version 1)
Quarter: 2015Q4

REPORT INFORMATION
  Report Type: Report from Study
  Country: US (occurrence: US)
  Receive Date: 20151223
  Receipt Date: 20151223
  Transmission Date: 20160305
  Serious: Yes (Hospitalization)
  Sender: FDA-Public Use
  Company Number: US-EXELIXIS-CABO-15005774

PATIENT
  Age: 58 Year
  Sex: Male

DRUGS (1)
  1. COMETRIQ [Suspect]
     Active Substance: CABOZANTINIB S-MALATE
     Indication: RENAL CANCER
     Dosage: 60 MG, QD
     Route: 048
     Dates: start: 20150401, end: 201510

REACTIONS (6)
  - Cardiac failure congestive [Recovering/Resolving]
  - Gangrene [Recovering/Resolving]
  - Diabetes mellitus [Recovering/Resolving]
  - Chronic kidney disease [Recovering/Resolving]
  - Disease progression [Unknown]
  - Pulmonary embolism [Recovering/Resolving]

NARRATIVE: CASE EVENT DATE: 201510
